FAERS Safety Report 10282720 (Version 1)
Quarter: 2014Q3

REPORT INFORMATION
  Report Type: Report from Study
  Country: US (occurrence: US)
  Receive Date: 20140708
  Receipt Date: 20140708
  Transmission Date: 20150326
  Serious: Yes (Hospitalization)
  Sender: FDA-Public Use
  Company Number: US-ROCHE-1429011

PATIENT
  Age: 63 Year
  Sex: Male

DRUGS (14)
  1. DOXEPIN [Concomitant]
     Active Substance: DOXEPIN
     Route: 065
  2. TORSEMIDE. [Concomitant]
     Active Substance: TORSEMIDE
     Indication: OEDEMA
     Route: 065
  3. RANIBIZUMAB [Suspect]
     Active Substance: RANIBIZUMAB
     Indication: DIABETIC EYE DISEASE
     Dosage: BOTH EYES
     Route: 065
     Dates: start: 201404
  4. NYSTATIN. [Concomitant]
     Active Substance: NYSTATIN
     Indication: RASH
     Dosage: 100,000U
     Route: 065
  5. METOLAZONE. [Concomitant]
     Active Substance: METOLAZONE
     Dosage: 30 MIN BEFORE TORSEMIDE
     Route: 065
  6. SWEET OIL [Concomitant]
     Dosage: EACH EAR
     Route: 065
  7. FINASTERIDE. [Concomitant]
     Active Substance: FINASTERIDE
     Indication: BENIGN PROSTATIC HYPERPLASIA
     Route: 065
  8. TOPROL XL [Concomitant]
     Active Substance: METOPROLOL SUCCINATE
     Dosage: 3X25 MG, HOLD IF PULSE 50 SBP 110
     Route: 065
  9. LEVAQUIN [Concomitant]
     Active Substance: LEVOFLOXACIN
     Indication: URINARY TRACT INFECTION
     Route: 065
  10. LIPITOR [Concomitant]
     Active Substance: ATORVASTATIN CALCIUM
     Indication: BLOOD CHOLESTEROL
     Route: 065
  11. MIRALAX [Concomitant]
     Active Substance: POLYETHYLENE GLYCOL 3350
     Indication: CONSTIPATION
     Route: 065
  12. RANIBIZUMAB [Suspect]
     Active Substance: RANIBIZUMAB
     Indication: EYE HAEMORRHAGE
  13. LANTUS [Concomitant]
     Active Substance: INSULIN GLARGINE
     Indication: DIABETES MELLITUS
  14. DIABETIC ROBITUSSIN DM [Concomitant]

REACTIONS (7)
  - Pneumonia [Unknown]
  - Dehydration [Not Recovered/Not Resolved]
  - Nausea [Not Recovered/Not Resolved]
  - Urinary tract infection [Not Recovered/Not Resolved]
  - Dizziness [Unknown]
  - Fluid overload [Recovered/Resolved]
  - Rash [Unknown]

NARRATIVE: CASE EVENT DATE: 20140509
